FAERS Safety Report 24357808 (Version 1)
Quarter: 2024Q3

REPORT INFORMATION
  Report Type: Report from Study
  Country: ES (occurrence: ES)
  Receive Date: 20240924
  Receipt Date: 20240924
  Transmission Date: 20241016
  Serious: Yes (Hospitalization)
  Sender: PFIZER
  Company Number: None

PATIENT
  Age: 69 Year
  Sex: Female

DRUGS (4)
  1. VINCRISTINE SULFATE [Suspect]
     Active Substance: VINCRISTINE SULFATE
     Indication: Breast cancer
     Dosage: 1 CYCLE
     Dates: start: 20220407, end: 20220407
  2. RITUXIMAB [Suspect]
     Active Substance: RITUXIMAB
     Indication: Breast cancer
     Dosage: 1 CYCLE
     Dates: start: 20220407, end: 20220407
  3. DOXORUBICIN HYDROCHLORIDE [Suspect]
     Active Substance: DOXORUBICIN HYDROCHLORIDE
     Indication: Breast cancer
     Dosage: 1 CYCLE
     Dates: start: 20220407, end: 20220407
  4. CYCLOPHOSPHAMIDE [Suspect]
     Active Substance: CYCLOPHOSPHAMIDE
     Indication: Breast cancer
     Dosage: 1 CYCLE
     Dates: start: 20220407, end: 20220407

REACTIONS (1)
  - Pancytopenia [Recovering/Resolving]

NARRATIVE: CASE EVENT DATE: 20220505
